FAERS Safety Report 8806431 (Version 2)
Quarter: 2012Q4

REPORT INFORMATION
  Report Type: 
  Country: US (occurrence: US)
  Receive Date: 20120925
  Receipt Date: 20121113
  Transmission Date: 20130627
  Serious: Yes (Hospitalization)
  Sender: FDA-Public Use
  Company Number: US-ENDO PHARMACEUTICALS INC.-OPCR20121895

PATIENT
  Age: 53 None
  Sex: Female

DRUGS (5)
  1. OPANA ER 20MG [Suspect]
     Indication: PRODUCT USED FOR UNKNOWN INDICATION
     Dosage: 20 MG
     Route: 048
     Dates: start: 20120906
  2. OPANA ER 20MG [Suspect]
     Dosage: 10 MG
     Route: 048
     Dates: start: 2012, end: 20120905
  3. LASIX [Suspect]
     Indication: PRODUCT USED FOR UNKNOWN INDICATION
     Dosage: UNK
     Route: 065
  4. OPANA ER [Concomitant]
     Indication: PRODUCT USED FOR UNKNOWN INDICATION
     Route: 048
  5. OPANA ER [Concomitant]
     Route: 048
     Dates: end: 2012

REACTIONS (2)
  - Fall [Recovered/Resolved]
  - Blister [Recovered/Resolved]
